FAERS Safety Report 10227238 (Version 1)
Quarter: 2014Q2

REPORT INFORMATION
  Report Type: Spontaneous
  Country: CH (occurrence: CH)
  Receive Date: 20140610
  Receipt Date: 20140610
  Transmission Date: 20141212
  Serious: No
  Sender: FDA-Public Use
  Company Number: CH-JNJFOC-20140515923

PATIENT
  Age: 58 Year
  Sex: Male

DRUGS (5)
  1. DUROGESIC [Suspect]
     Indication: LUNG NEOPLASM MALIGNANT
     Route: 062
     Dates: start: 201404
  2. DUROGESIC [Suspect]
     Indication: METASTASES TO BONE
     Route: 062
     Dates: start: 201404
  3. DUROGESIC [Suspect]
     Indication: PAIN
     Route: 062
     Dates: start: 201404
  4. DAFALGAN [Concomitant]
     Route: 065
  5. MORPHINE [Concomitant]
     Route: 065

REACTIONS (3)
  - Wrong technique in drug usage process [Unknown]
  - Pain [Unknown]
  - Product quality issue [Unknown]
